FAERS Safety Report 13139030 (Version 1)
Quarter: 2017Q1

REPORT INFORMATION
  Report Type: Spontaneous
  Country: NL (occurrence: NL)
  Receive Date: 20170123
  Receipt Date: 20170123
  Transmission Date: 20170428
  Serious: Yes (Other)
  Sender: FDA-Public Use
  Company Number: NL-MEDA-2017010074

PATIENT
  Age: 58 Year
  Sex: Male

DRUGS (1)
  1. DYMISTA [Suspect]
     Active Substance: AZELASTINE HYDROCHLORIDE\FLUTICASONE PROPIONATE
     Route: 045
     Dates: start: 20160906, end: 20160909

REACTIONS (2)
  - Bronchospasm [Unknown]
  - Sense of oppression [Unknown]

NARRATIVE: CASE EVENT DATE: 20160909
